FAERS Safety Report 23825768 (Version 1)
Quarter: 2024Q2

REPORT INFORMATION
  Report Type: Spontaneous
  Country: GB (occurrence: GB)
  Receive Date: 20240507
  Receipt Date: 20240507
  Transmission Date: 20240715
  Serious: Yes (Hospitalization)
  Sender: FDA-Public Use
  Company Number: GB-MYLANLABS-2024M1040982

PATIENT
  Age: 46 Year
  Sex: Male

DRUGS (1)
  1. AMLODIPINE [Suspect]
     Active Substance: AMLODIPINE BESYLATE
     Indication: Product used for unknown indication
     Dosage: 250 MILLIGRAM (INTENTIONALLY INGESTED AMLODIPINE 50X5MG TABLETS)
     Route: 048

REACTIONS (2)
  - Intentional overdose [Recovering/Resolving]
  - Myocarditis [Recovering/Resolving]
